FAERS Safety Report 25930212 (Version 1)
Quarter: 2025Q4

REPORT INFORMATION
  Report Type: Spontaneous
  Country: US (occurrence: None)
  Receive Date: 20251015
  Receipt Date: 20251015
  Transmission Date: 20260118
  Serious: Yes (Death)
  Sender: FDA-CTU
  Company Number: None

PATIENT
  Age: 80 Year
  Sex: Male

DRUGS (11)
  1. REVLIMID [Suspect]
     Active Substance: LENALIDOMIDE
     Indication: Plasma cell myeloma
     Dosage: 5 MG DAILY ORAL ?
     Route: 048
     Dates: start: 20240401, end: 20251014
  2. Calcium 600mg [Concomitant]
  3. AMLODIPINE BESYLATE [Concomitant]
     Active Substance: AMLODIPINE BESYLATE
  4. ASPIRIN 81MG EC LOW DOSE TABLETS [Concomitant]
  5. FAMOTIDINE [Concomitant]
     Active Substance: FAMOTIDINE
  6. FLUCONAZOLE 100MG TABLETS [Concomitant]
  7. HUMULIN 70/30 INJ, 3ML [Concomitant]
  8. HYDRALAZINE 100MG (HUNDRED MG) TABS [Concomitant]
  9. ISOSORBIDE MONONITRATE 10MG TABS [Concomitant]
  10. LOSARTAN [Concomitant]
     Active Substance: LOSARTAN
  11. SYNTHROID 0.075MG [Concomitant]

REACTIONS (1)
  - Death [None]

NARRATIVE: CASE EVENT DATE: 20251014
